FAERS Safety Report 7886767-9 (Version None)
Quarter: 2011Q4

REPORT INFORMATION
  Report Type: 
  Country: None (occurrence: None)
  Receive Date: 20111102
  Receipt Date: 20110711
  Transmission Date: 20120403
  Serious: No
  Sender: FDA-Public Use
  Company Number: US-AMGEN-USASP2011035059

PATIENT
  Sex: Female

DRUGS (2)
  1. ENBREL [Suspect]
     Indication: PSORIASIS
     Dosage: 50 MG, 2 TIMES/WK
     Dates: start: 20110407
  2. ENBREL [Suspect]
     Indication: CROHN'S DISEASE

REACTIONS (3)
  - TENDERNESS [None]
  - PRURITUS [None]
  - OTORRHOEA [None]
